FAERS Safety Report 11212318 (Version 2)
Quarter: 2015Q3

REPORT INFORMATION
  Report Type: Spontaneous
  Country: US (occurrence: US)
  Receive Date: 20150623
  Receipt Date: 20150827
  Transmission Date: 20151125
  Serious: No
  Sender: FDA-Public Use
  Company Number: US-PFIZER INC-2015205092

PATIENT
  Age: 11 Year
  Sex: Female
  Weight: 48 kg

DRUGS (2)
  1. JUNIOR STRENGTH ADVIL [Suspect]
     Active Substance: IBUPROFEN
     Indication: HEADACHE
     Dosage: 3 DF, UNK
     Route: 048
     Dates: start: 20150617
  2. FLOVENT [Concomitant]
     Active Substance: FLUTICASONE PROPIONATE
     Dosage: 44 ?G, UNK

REACTIONS (4)
  - Paraesthesia oral [Unknown]
  - Glossodynia [Unknown]
  - Hypoaesthesia oral [Unknown]
  - Product quality issue [Unknown]

NARRATIVE: CASE EVENT DATE: 20150617
